FAERS Safety Report 13642557 (Version 1)
Quarter: 2017Q2

REPORT INFORMATION
  Report Type: Spontaneous
  Country: IT (occurrence: IT)
  Receive Date: 20170612
  Receipt Date: 20170612
  Transmission Date: 20170830
  Serious: Yes (Other)
  Sender: FDA-Public Use
  Company Number: IT-BAYER-2017-107002

PATIENT
  Age: 74 Year
  Sex: Female

DRUGS (6)
  1. SERENASE [HALOPERIDOL DECANOATE] [Concomitant]
  2. DEPAKIN [Concomitant]
     Active Substance: VALPROATE SODIUM
  3. LORAZEPAM. [Concomitant]
     Active Substance: LORAZEPAM
  4. CARBON [Suspect]
     Active Substance: ACTIVATED CHARCOAL
     Dosage: 30 G, QD
  5. METFORMIN [Concomitant]
     Active Substance: METFORMIN HYDROCHLORIDE
  6. CARDIOASPIRIN 100 MG [Suspect]
     Active Substance: ASPIRIN
     Indication: PRODUCT USED FOR UNKNOWN INDICATION
     Dosage: 15 DF, ONCE
     Route: 048
     Dates: start: 20160108, end: 20160108

REACTIONS (2)
  - Hypokinesia [Recovering/Resolving]
  - Bradyphrenia [Recovering/Resolving]

NARRATIVE: CASE EVENT DATE: 20160108
